FAERS Safety Report 9836735 (Version 17)
Quarter: 2016Q3

REPORT INFORMATION
  Report Type: Report from Study
  Country: CA (occurrence: CA)
  Receive Date: 20140123
  Receipt Date: 20160922
  Transmission Date: 20161109
  Serious: Yes (Life-Threatening, Hospitalization, Other)
  Sender: FDA-Public Use
  Company Number: PHHY2013CA150303

PATIENT
  Age: 69 Year
  Sex: Male

DRUGS (16)
  1. SANDOSTATIN LAR DEPOT [Suspect]
     Active Substance: OCTREOTIDE ACETATE
     Indication: NEUROENDOCRINE CARCINOMA METASTATIC
     Dosage: 30 MG, QMO,EVERY 28 DAYS
     Route: 030
  2. SUTENT [Suspect]
     Active Substance: SUNITINIB MALATE
     Dosage: UNK
     Route: 065
     Dates: start: 20140108
  3. TEMOZOLOMIDE. [Concomitant]
     Active Substance: TEMOZOLOMIDE
     Dosage: 1 DF (140 MG), BID (MORNING AND NIGHT OF DAYS 10-14))
     Route: 065
  4. SANDOSTATIN LAR DEPOT [Suspect]
     Active Substance: OCTREOTIDE ACETATE
     Dosage: 40 MG, QMO, EVERY 4 WEEKS
     Route: 030
  5. SANDOSTATIN [Suspect]
     Active Substance: OCTREOTIDE ACETATE
     Indication: NEUROENDOCRINE CARCINOMA METASTATIC
  6. SANDOSTATIN LAR DEPOT [Suspect]
     Active Substance: OCTREOTIDE ACETATE
     Dosage: 30 MG, QMO, EVERY 4 WEEKS
     Route: 030
  7. SANDOSTATIN [Suspect]
     Active Substance: OCTREOTIDE ACETATE
     Indication: PANCREATIC NEUROENDOCRINE TUMOUR METASTATIC
     Dosage: 100 UG, TID FOR 10 DAYS
     Route: 058
     Dates: start: 20130916, end: 20130925
  8. ZAXINE [Concomitant]
     Active Substance: RIFAXIMIN
     Indication: PRODUCT USED FOR UNKNOWN INDICATION
     Dosage: BID, FOR THREE MONTHS
     Route: 065
  9. SANDOSTATIN LAR DEPOT [Suspect]
     Active Substance: OCTREOTIDE ACETATE
     Dosage: 50 MG, QMO
     Route: 030
     Dates: start: 20160115
  10. SUTENT [Suspect]
     Active Substance: SUNITINIB MALATE
     Dosage: UNK
     Route: 065
     Dates: start: 20140107
  11. AVEC [Concomitant]
     Indication: PRODUCT USED FOR UNKNOWN INDICATION
     Dosage: 500 MG, BID (MORNING AND NIGHT)
     Route: 065
  12. TEVA CAPECITABINE [Concomitant]
     Indication: PRODUCT USED FOR UNKNOWN INDICATION
     Dosage: 150 MG, BID (MORNING AND NIGHT)
     Route: 065
  13. SODIUM BENZOATE [Concomitant]
     Active Substance: SODIUM BENZOATE
     Indication: PRODUCT USED FOR UNKNOWN INDICATION
     Dosage: 15 ML, BID, FOR 3 MONTHS
     Route: 065
  14. SANDOSTATIN LAR DEPOT [Suspect]
     Active Substance: OCTREOTIDE ACETATE
     Indication: PANCREATIC NEUROENDOCRINE TUMOUR METASTATIC
     Dosage: 30 MG, QMO, EVERY 4 WEEKS
     Route: 030
     Dates: start: 20130925
  15. SUTENT [Suspect]
     Active Substance: SUNITINIB MALATE
     Indication: PRODUCT USED FOR UNKNOWN INDICATION
     Dosage: UNK
     Route: 065
     Dates: start: 20140106
  16. TEMOZOLOMIDE. [Concomitant]
     Active Substance: TEMOZOLOMIDE
     Indication: PRODUCT USED FOR UNKNOWN INDICATION
     Dosage: 2 DF (20 MG), BID
     Route: 065

REACTIONS (25)
  - Hypersomnia [Not Recovered/Not Resolved]
  - Anxiety [Not Recovered/Not Resolved]
  - Pain in extremity [Recovered/Resolved]
  - Tremor [Not Recovered/Not Resolved]
  - Daydreaming [Not Recovered/Not Resolved]
  - Cough [Unknown]
  - Muscular weakness [Unknown]
  - Oedema peripheral [Unknown]
  - Injection site reaction [Unknown]
  - Therapy non-responder [Recovering/Resolving]
  - Muscle spasms [Recovered/Resolved]
  - Unresponsive to stimuli [Recovering/Resolving]
  - Cerebrovascular accident [Unknown]
  - Blood pressure systolic increased [Unknown]
  - Somnolence [Recovered/Resolved]
  - Blood pressure decreased [Unknown]
  - Blood pressure diastolic decreased [Unknown]
  - Confusional state [Unknown]
  - Fatigue [Not Recovered/Not Resolved]
  - Coordination abnormal [Not Recovered/Not Resolved]
  - Yawning [Unknown]
  - Hepatic encephalopathy [Unknown]
  - Communication disorder [Recovered/Resolved]
  - Language disorder [Unknown]
  - Ammonia increased [Recovering/Resolving]

NARRATIVE: CASE EVENT DATE: 20131216
